FAERS Safety Report 8181914-6 (Version None)
Quarter: 2012Q1

REPORT INFORMATION
  Report Type: 
  Country: None (occurrence: None)
  Receive Date: 20120302
  Receipt Date: 20120229
  Transmission Date: 20120608
  Serious: No
  Sender: FDA-Public Use
  Company Number: US-PFIZER INC-2012055001

PATIENT
  Age: 59 Year
  Sex: Female

DRUGS (3)
  1. LISINOPRIL [Concomitant]
     Dosage: UNK
  2. DILTIAZEM [Concomitant]
     Dosage: UNK
  3. PRISTIQ [Suspect]
     Dosage: 50 MG, 1X/DAY (DAILY DOSE)
     Dates: start: 20120101

REACTIONS (2)
  - HYPOAESTHESIA [None]
  - PARAESTHESIA [None]
